FAERS Safety Report 21105258 (Version 1)
Quarter: 2022Q3

REPORT INFORMATION
  Report Type: Spontaneous
  Country: US (occurrence: None)
  Receive Date: 20220719
  Receipt Date: 20220719
  Transmission Date: 20221027
  Serious: Yes (Life-Threatening, Hospitalization)
  Sender: FDA-Public Use
  Company Number: None

PATIENT
  Age: 78 Year
  Sex: Male
  Weight: 87.75 kg

DRUGS (2)
  1. WARFARIN [Suspect]
     Active Substance: WARFARIN
     Indication: Coronary artery disease
     Dosage: FREQUENCY : DAILY;?
     Route: 048
     Dates: start: 20220710, end: 20220719
  2. Warfarin 5 mg tab [Concomitant]
     Dates: start: 20220712, end: 20220719

REACTIONS (9)
  - Fall [None]
  - Head injury [None]
  - Joint injury [None]
  - Haemorrhage [None]
  - Dizziness [None]
  - Dizziness [None]
  - Product dose confusion [None]
  - Product administration error [None]
  - Incorrect dose administered [None]

NARRATIVE: CASE EVENT DATE: 20220719
